FAERS Safety Report 21932770 (Version 2)
Quarter: 2023Q1

REPORT INFORMATION
  Report Type: Report from Study
  Country: US (occurrence: US)
  Receive Date: 20230131
  Receipt Date: 20230228
  Transmission Date: 20230418
  Serious: Yes (Death, Other)
  Sender: FDA-Public Use
  Company Number: US-GW PHARMA-2023-US-002176

PATIENT
  Age: 16 Year
  Sex: Female
  Weight: 58.1 kg

DRUGS (11)
  1. EPIDIOLEX [Suspect]
     Active Substance: CANNABIDIOL
     Indication: Lennox-Gastaut syndrome
     Dosage: 4.6 MILLILITER, BID
     Route: 048
     Dates: start: 20190308
  2. EPIDIOLEX [Suspect]
     Active Substance: CANNABIDIOL
     Indication: Epilepsy
     Dosage: 4.3 MILLILITER
     Route: 048
     Dates: start: 202208
  3. EPIDIOLEX [Suspect]
     Active Substance: CANNABIDIOL
     Dosage: UNK
     Route: 048
     Dates: start: 20221220, end: 20221227
  4. FELBAMATE [Concomitant]
     Active Substance: FELBAMATE
     Indication: Epilepsy
     Dosage: 16 MILLILITER, IN AM
     Route: 048
     Dates: start: 201910
  5. FELBAMATE [Concomitant]
     Active Substance: FELBAMATE
     Dosage: 10 MILLILITER, IN PM
     Route: 048
     Dates: start: 201910, end: 20221227
  6. CLORAZEPATE DIPOTASSIUM [Concomitant]
     Active Substance: CLORAZEPATE DIPOTASSIUM
     Indication: Epilepsy
     Dosage: 7.5MG/11.25MG
     Route: 048
     Dates: start: 201701, end: 20221227
  7. DIAZEPAM [Concomitant]
     Active Substance: DIAZEPAM
     Indication: Epilepsy
     Dosage: 10 MILLIGRAM, PRN
     Route: 042
  8. NORETHINDRONE [Concomitant]
     Active Substance: NORETHINDRONE
     Indication: Product used for unknown indication
  9. LEVOCARNITINE [Concomitant]
     Active Substance: LEVOCARNITINE
     Indication: Product used for unknown indication
  10. FOLIC ACID [Concomitant]
     Active Substance: FOLIC ACID
     Indication: Product used for unknown indication
  11. LEVOTHYROXINE [Concomitant]
     Active Substance: LEVOTHYROXINE
     Indication: Product used for unknown indication

REACTIONS (8)
  - Hypertrophic cardiomyopathy [Fatal]
  - Arrhythmia [Fatal]
  - Obstructive sleep apnoea syndrome [Unknown]
  - Pallor [Recovered/Resolved]
  - Lethargy [Recovered/Resolved]
  - Increased appetite [Unknown]
  - Weight increased [Unknown]
  - Off label use [Unknown]

NARRATIVE: CASE EVENT DATE: 20221216
